FAERS Safety Report 17039009 (Version 2)
Quarter: 2019Q4

REPORT INFORMATION
  Report Type: Spontaneous
  Country: US (occurrence: US)
  Receive Date: 20191115
  Receipt Date: 20191210
  Transmission Date: 20200122
  Serious: Yes (Other)
  Sender: FDA-Public Use
  Company Number: US-ALLERGAN-1944935US

PATIENT
  Sex: Female

DRUGS (1)
  1. KYBELLA [Suspect]
     Active Substance: DEOXYCHOLIC ACID
     Indication: FAT TISSUE INCREASED
     Dosage: UNK ML, SINGLE
     Route: 058
     Dates: start: 20191104, end: 20191104

REACTIONS (7)
  - Injection site haemorrhage [Recovered/Resolved]
  - Facial paresis [Recovering/Resolving]
  - Injection site discomfort [Recovering/Resolving]
  - Injection site swelling [Recovering/Resolving]
  - Nerve injury [Recovering/Resolving]
  - Dysarthria [Recovering/Resolving]
  - Hypoaesthesia oral [Recovering/Resolving]

NARRATIVE: CASE EVENT DATE: 201911
